FAERS Safety Report 6190199-1 (Version None)
Quarter: 2009Q2

REPORT INFORMATION
  Report Type: 
  Country: None (occurrence: None)
  Receive Date: 20090514
  Receipt Date: 20090506
  Transmission Date: 20091009
  Serious: Yes (Hospitalization)
  Sender: FDA-Public Use
  Company Number: FR-JNJFOC-20090205489

PATIENT
  Age: 25 Year
  Sex: Male
  Weight: 60 kg

DRUGS (4)
  1. INFLIXIMAB [Suspect]
     Dosage: 4 INFUSIONS ADMINISTERED (TIMEFRAME NOT SPECIFIED)
     Route: 042
  2. INFLIXIMAB [Suspect]
     Indication: COLITIS ULCERATIVE
     Route: 042
  3. AZATHIOPRINE [Concomitant]
  4. SOLUPRED [Concomitant]
     Indication: CROHN'S DISEASE
     Route: 048

REACTIONS (2)
  - COLITIS ULCERATIVE [None]
  - PALPITATIONS [None]
